FAERS Safety Report 6470357-9 (Version None)
Quarter: 2009Q4

REPORT INFORMATION
  Report Type: 
  Country: None (occurrence: None)
  Receive Date: 20091119
  Receipt Date: 20090518
  Transmission Date: 20100525
  Serious: Yes (Other)
  Sender: FDA-Public Use
  Company Number: 2009-193351-NL

PATIENT
  Age: 20 Year
  Sex: Female
  Weight: 142 kg

DRUGS (2)
  1. IMPLANON [Suspect]
     Indication: CONTRACEPTION
     Dosage: SUBDERMAL
     Route: 059
     Dates: start: 20081230
  2. TYLENOL (CAPLET) [Concomitant]

REACTIONS (7)
  - ABDOMINAL PAIN [None]
  - HEADACHE [None]
  - IRRITABILITY [None]
  - METRORRHAGIA [None]
  - PAIN IN EXTREMITY [None]
  - VAGINAL DISCHARGE [None]
  - WEIGHT INCREASED [None]
